FAERS Safety Report 6136663-2 (Version None)
Quarter: 2009Q1

REPORT INFORMATION
  Report Type: 
  Country: None (occurrence: None)
  Receive Date: 20090330
  Receipt Date: 20090320
  Transmission Date: 20090719
  Serious: Yes (Hospitalization)
  Sender: FDA-Public Use
  Company Number: B0567265A

PATIENT
  Age: 36 Year
  Sex: Female

DRUGS (3)
  1. LAMIVUDINE [Suspect]
     Indication: HIV INFECTION
  2. STAVUDINE [Suspect]
     Indication: HIV INFECTION
  3. NEVIRAPINE [Suspect]
     Indication: HIV INFECTION

REACTIONS (14)
  - ABASIA [None]
  - ASTHENIA [None]
  - BLADDER DISORDER [None]
  - CRYPTOCOCCOSIS [None]
  - GASTROINTESTINAL DISORDER [None]
  - HYPERREFLEXIA [None]
  - HYPOAESTHESIA [None]
  - IMMUNE RECONSTITUTION SYNDROME [None]
  - MALAISE [None]
  - MYELOPATHY [None]
  - PARESIS [None]
  - PYREXIA [None]
  - RADICULITIS [None]
  - SALMONELLA SEPSIS [None]
